FAERS Safety Report 7531082-6 (Version None)
Quarter: 2011Q2

REPORT INFORMATION
  Report Type: 
  Country: None (occurrence: None)
  Receive Date: 20110531
  Receipt Date: 20110513
  Transmission Date: 20111010
  Serious: Yes (Hospitalization)
  Sender: FDA-Public Use
  Company Number: TCI2011A02044

PATIENT
  Age: 78 Year
  Sex: Male

DRUGS (10)
  1. ACTOS [Suspect]
     Indication: DIABETES MELLITUS
     Dosage: 15 MG (15 MG, 1 IN 1 D), PER ORAL
     Route: 048
     Dates: end: 20110302
  2. MUCOSTA (REBAMIPIDE) [Concomitant]
  3. KETAS (IBUDILAST) [Concomitant]
  4. TENORMIN [Concomitant]
  5. METFORMIN HYDROCHLORIDE [Concomitant]
  6. GLYBURIDE [Concomitant]
  7. SEIBULE (MIGLITOL) [Concomitant]
  8. LAC B (LACTOLBACILLUS BIFIDUS, LYOPHILIZED) [Concomitant]
  9. METHYCOBAL (MECOBALAMIN) [Concomitant]
  10. EXFORGE [Concomitant]

REACTIONS (3)
  - CARDIAC FAILURE [None]
  - PLEURAL EFFUSION [None]
  - DEPRESSED LEVEL OF CONSCIOUSNESS [None]
